FAERS Safety Report 5209184-9 (Version None)
Quarter: 2006Q4

REPORT INFORMATION
  Report Type: 
  Country: None (occurrence: None)
  Receive Date: 20061229
  Receipt Date: 20061214
  Transmission Date: 20070319
  Serious: Yes (Hospitalization)
  Sender: FDA-Public Use
  Company Number: 200611711BVD

PATIENT
  Age: 13 Year
  Sex: Female
  Weight: 27 kg

DRUGS (5)
  1. GAMUNEX [Suspect]
     Indication: PROTEIN-LOSING GASTROENTEROPATHY
     Dosage: 20 G, TOTAL DAILY, INTRAVENOUS
     Route: 042
     Dates: start: 20061026
  2. GAMUNEX [Suspect]
     Indication: PROTEIN-LOSING GASTROENTEROPATHY
     Dosage: 20 G TOTAL DAILY
     Route: 042
     Dates: start: 20061124
  3. ALDACTONE [Concomitant]
  4. CALCIUM GLUCONATE [Concomitant]
  5. VITAMIN D [Concomitant]

REACTIONS (5)
  - CARDIOVASCULAR DISORDER [None]
  - HEADACHE [None]
  - NEUROLOGICAL SYMPTOM [None]
  - PYREXIA [None]
  - VOMITING [None]
